FAERS Safety Report 17794433 (Version 1)
Quarter: 2020Q2

REPORT INFORMATION
  Report Type: Report from Study
  Country: PE (occurrence: PE)
  Receive Date: 20200515
  Receipt Date: 20200515
  Transmission Date: 20200714
  Serious: Yes (Hospitalization)
  Sender: FDA-Public Use
  Company Number: NVSC2020PE108831

PATIENT
  Age: 62 Year
  Sex: Female

DRUGS (2)
  1. AFINITOR [Suspect]
     Active Substance: EVEROLIMUS
     Dosage: 10 MG, QD (STOP DOSE 20 DAYS AGO)
     Route: 065
     Dates: start: 20200408
  2. AFINITOR [Suspect]
     Active Substance: EVEROLIMUS
     Indication: BREAST CANCER METASTATIC
     Dosage: 10MG
     Route: 048
     Dates: start: 20200225, end: 20200403

REACTIONS (5)
  - Pyrexia [Recovered/Resolved]
  - Swelling face [Unknown]
  - Mouth injury [Unknown]
  - Oral pain [Recovering/Resolving]
  - Aphthous ulcer [Recovering/Resolving]

NARRATIVE: CASE EVENT DATE: 202004
